FAERS Safety Report 14871812 (Version 1)
Quarter: 2018Q2

REPORT INFORMATION
  Report Type: Spontaneous
  Country: KR (occurrence: KR)
  Receive Date: 20180509
  Receipt Date: 20180509
  Transmission Date: 20180711
  Serious: Yes (Other)
  Sender: FDA-Public Use
  Company Number: KR-BAYER-2018-084199

PATIENT
  Sex: Male

DRUGS (2)
  1. NEXAVAR [Suspect]
     Active Substance: SORAFENIB
     Indication: HEPATOCELLULAR CARCINOMA
     Dosage: HALF DOSE
     Dates: start: 20170816, end: 20170925
  2. NEXAVAR [Suspect]
     Active Substance: SORAFENIB
     Indication: HEPATOCELLULAR CARCINOMA
     Dosage: UNK
     Dates: start: 20170731

REACTIONS (3)
  - Palmar-plantar erythrodysaesthesia syndrome [None]
  - Alopecia [None]
  - Hepatocellular carcinoma [None]

NARRATIVE: CASE EVENT DATE: 2017
